FAERS Safety Report 4747812-2 (Version None)
Quarter: 2005Q3

REPORT INFORMATION
  Report Type: 
  Country: None (occurrence: None)
  Receive Date: 20050818
  Receipt Date: 20050805
  Transmission Date: 20060218
  Serious: Yes (Other)
  Sender: FDA-Public Use
  Company Number: JP-JNJFOC-20050801651

PATIENT
  Age: 58 Year
  Sex: Female

DRUGS (5)
  1. INFLIXIMAB [Suspect]
     Indication: RHEUMATOID ARTHRITIS
     Dosage: CUMULATIVE DOSE OF 1080 MG IN 9 MONTHS
     Route: 042
  2. METHOTREXATE [Suspect]
     Indication: RHEUMATOID ARTHRITIS
     Dosage: (5-7.5 MG/WK) WITH A CUMULATIVE DOSE OF 1214 MG WAS ADMINISTERED OVER A 10-YEAR PERIOD
  3. BUCILLAMINE [Concomitant]
  4. CYCLOSPORINE [Concomitant]
  5. NSAID [Concomitant]

REACTIONS (1)
  - HODGKIN'S DISEASE [None]
